FAERS Safety Report 10222576 (Version 1)
Quarter: 2014Q2

REPORT INFORMATION
  Report Type: Spontaneous
  Country: US (occurrence: US)
  Receive Date: 20140606
  Receipt Date: 20140606
  Transmission Date: 20141212
  Serious: Yes (Hospitalization, Other)
  Sender: FDA-Public Use
  Company Number: US-B.I. PHARMACEUTICALS,INC./RIDGEFIELD-2014-BI-25079BP

PATIENT
  Age: 72 Year
  Sex: Female
  Weight: 83 kg

DRUGS (9)
  1. PRADAXA [Suspect]
     Indication: CEREBROVASCULAR ACCIDENT PROPHYLAXIS
     Dosage: 150 MG
     Route: 048
     Dates: start: 2010
  2. MICARDIS HCT [Suspect]
     Indication: HYPERTENSION
     Dosage: DOSE PER APPLICATION: 80 MG PER 12.5 MG, DAILY DOSE: 160 MG PER 25 MG
     Route: 048
  3. NABUMETONE [Concomitant]
     Indication: ARTHRITIS
     Dosage: 1500 MG
     Route: 048
  4. OXAZEPAM [Concomitant]
     Indication: ANXIETY
     Dosage: 90 MG
     Route: 048
  5. NITROSTATIN [Concomitant]
     Indication: ANGINA PECTORIS
     Route: 050
  6. MICRO-K [Concomitant]
     Indication: BLOOD POTASSIUM DECREASED
     Dosage: 10 MEQ
     Route: 048
  7. AMLODIPINE [Concomitant]
     Indication: HYPERTENSION
     Dosage: 5 MG
     Route: 048
  8. OMEPRAZOLE [Concomitant]
     Indication: GASTROOESOPHAGEAL REFLUX DISEASE
     Dosage: 40 MG
     Route: 048
  9. SIMVASTATIN [Concomitant]
     Indication: BLOOD CHOLESTEROL INCREASED
     Dosage: 10 MG
     Route: 048

REACTIONS (7)
  - Cerebrovascular accident [Recovered/Resolved]
  - Cardiac disorder [Recovered/Resolved]
  - Heart rate irregular [Recovered/Resolved]
  - Diarrhoea [Not Recovered/Not Resolved]
  - Peripheral swelling [Not Recovered/Not Resolved]
  - Pain in extremity [Not Recovered/Not Resolved]
  - Dyspnoea [Not Recovered/Not Resolved]
